FAERS Safety Report 10228808 (Version 2)
Quarter: 2014Q2

REPORT INFORMATION
  Report Type: Spontaneous
  Country: US (occurrence: US)
  Receive Date: 20140610
  Receipt Date: 20140619
  Transmission Date: 20141212
  Serious: No
  Sender: FDA-Public Use
  Company Number: US-TEVA-487527USA

PATIENT
  Age: 34 Year
  Sex: Female
  Weight: 99.88 kg

DRUGS (6)
  1. PLAN B ONE-STEP [Suspect]
     Indication: POST COITAL CONTRACEPTION
     Dosage: 1.5 MILLIGRAM DAILY;
     Route: 048
     Dates: start: 20140604, end: 20140604
  2. GLIPIZIDE [Concomitant]
     Indication: DIABETES MELLITUS
     Dosage: 5 MILLIGRAM DAILY;
     Route: 048
  3. OMEPRAZOLE DELAYED-RELEASE [Concomitant]
     Indication: GASTROOESOPHAGEAL REFLUX DISEASE
     Dosage: 20 MILLIGRAM DAILY;
     Route: 048
  4. LEVOTHYROXINE [Concomitant]
     Indication: HYPOTHYROIDISM
     Dosage: 25 MILLIGRAM DAILY;
     Route: 048
  5. CLONAZEPAM [Concomitant]
     Indication: DEPRESSION
     Dosage: 2 MILLIGRAM DAILY;
     Route: 048
  6. TRAZODONE [Concomitant]
     Indication: DEPRESSION
     Dosage: 50 MILLIGRAM DAILY;
     Route: 048

REACTIONS (1)
  - Headache [Recovered/Resolved]
